FAERS Safety Report 23743650 (Version 1)
Quarter: 2024Q2

REPORT INFORMATION
  Report Type: Spontaneous
  Country: US (occurrence: US)
  Receive Date: 20240415
  Receipt Date: 20240415
  Transmission Date: 20240716
  Serious: No
  Sender: FDA-Public Use
  Company Number: US-MYLANLABS-2024M1027331

PATIENT
  Age: 89 Year
  Sex: Female

DRUGS (1)
  1. BREYNA [Suspect]
     Active Substance: BUDESONIDE\FORMOTEROL FUMARATE
     Indication: Asthma
     Dosage: 160/9 MICROGRAM, QD (TWO PUFFS ONCE A DAY)
     Route: 055
     Dates: start: 202403

REACTIONS (2)
  - Product delivery mechanism issue [Unknown]
  - Off label use [Unknown]

NARRATIVE: CASE EVENT DATE: 20240301
